FAERS Safety Report 20616561 (Version 1)
Quarter: 2022Q1

REPORT INFORMATION
  Report Type: Spontaneous
  Country: US (occurrence: US)
  Receive Date: 20220321
  Receipt Date: 20220321
  Transmission Date: 20220423
  Serious: Yes (Other)
  Sender: FDA-Public Use
  Company Number: US-PFIZER INC-202200379325

PATIENT
  Age: 69 Year
  Sex: Female
  Weight: 123.38 kg

DRUGS (7)
  1. CELEBREX [Interacting]
     Active Substance: CELECOXIB
     Indication: Pain
     Dosage: 100 MG, 2X/DAY
     Route: 048
     Dates: start: 2012
  2. CELEBREX [Interacting]
     Active Substance: CELECOXIB
     Dosage: 100 MG, 2X/DAY
     Route: 048
  3. TRAMADOL [Interacting]
     Active Substance: TRAMADOL
     Indication: Pain
     Dosage: UNK, 1X/DAY (AT NIGHT)
  4. CRESTOR [Concomitant]
     Active Substance: ROSUVASTATIN CALCIUM
     Indication: Blood cholesterol increased
     Dosage: 20 MG, 1X/DAY (AT NIGHT)
     Route: 048
     Dates: start: 2005
  5. METOPROLOL [Concomitant]
     Active Substance: METOPROLOL
     Indication: Hypertension
     Dosage: 60 MG, 2X/DAY
     Route: 048
  6. CEFIXIME [Concomitant]
     Active Substance: CEFIXIME
     Dosage: 5 MG, 3X/DAY
     Route: 048
  7. LOPRESSOR [Concomitant]
     Active Substance: METOPROLOL TARTRATE
     Indication: Heart rate increased

REACTIONS (16)
  - Rotator cuff syndrome [Unknown]
  - Drug dependence [Unknown]
  - Off label use [Unknown]
  - Product use issue [Unknown]
  - Abdominal discomfort [Unknown]
  - Spinal osteoarthritis [Unknown]
  - Osteoporosis [Unknown]
  - Disturbance in attention [Unknown]
  - Cardiac disorder [Unknown]
  - Heart rate increased [Unknown]
  - Intentional underdose [Unknown]
  - Drug interaction [Unknown]
  - Sedation [Unknown]
  - Hyperhidrosis [Unknown]
  - Thirst [Unknown]
  - Obesity [Unknown]
